FAERS Safety Report 5581852-9 (Version None)
Quarter: 2008Q1

REPORT INFORMATION
  Report Type: 
  Country: None (occurrence: None)
  Receive Date: 20080104
  Receipt Date: 20071231
  Transmission Date: 20080703
  Serious: Yes (Life-Threatening, Hospitalization)
  Sender: FDA-Public Use
  Company Number: GB-PFIZER INC-2008000726

PATIENT
  Age: 58 Year
  Sex: Male
  Weight: 92 kg

DRUGS (6)
  1. ATORVASTATIN CALCIUM [Suspect]
     Indication: BLOOD CHOLESTEROL INCREASED
     Route: 048
     Dates: start: 20060124, end: 20060125
  2. ASPIRIN [Concomitant]
     Route: 048
  3. INSULIN [Concomitant]
     Route: 058
  4. LERCANIDIPINE [Concomitant]
     Route: 048
  5. OLMESARTAN MEDOXOMIL [Concomitant]
  6. SIMVASTATIN [Concomitant]
     Route: 048

REACTIONS (1)
  - TRANSIENT ISCHAEMIC ATTACK [None]
